FAERS Safety Report 11976081 (Version 1)
Quarter: 2016Q1

REPORT INFORMATION
  Report Type: Spontaneous
  Country: GB (occurrence: GB)
  Receive Date: 20160129
  Receipt Date: 20160129
  Transmission Date: 20160526
  Serious: Yes (Other)
  Sender: FDA-Public Use
  Company Number: GB-ACCORD-037202

PATIENT
  Age: 64 Year
  Sex: Female
  Weight: 68 kg

DRUGS (1)
  1. CLOPIDOGREL [Suspect]
     Active Substance: CLOPIDOGREL BISULFATE
     Indication: ANTIPLATELET THERAPY
     Dates: end: 20151222

REACTIONS (4)
  - Dyspnoea [Recovering/Resolving]
  - Increased tendency to bruise [Recovering/Resolving]
  - Vascular injury [Recovering/Resolving]
  - Cough [Recovering/Resolving]
